FAERS Safety Report 9470138 (Version 1)
Quarter: 2013Q3

REPORT INFORMATION
  Report Type: Spontaneous
  Country: US (occurrence: None)
  Receive Date: 20130820
  Receipt Date: 20130820
  Transmission Date: 20140515
  Serious: Yes (Hospitalization)
  Sender: FDA-Public Use
  Company Number: None

PATIENT
  Age: 29 Year
  Sex: Female

DRUGS (1)
  1. LARIAM [Suspect]

REACTIONS (10)
  - Feeling abnormal [None]
  - Malaise [None]
  - Tremor [None]
  - Discomfort [None]
  - Hallucination, auditory [None]
  - Agoraphobia [None]
  - Dyspnoea [None]
  - Impaired work ability [None]
  - Adjustment disorder [None]
  - Panic attack [None]
